FAERS Safety Report 4710085-0 (Version None)
Quarter: 2005Q3

REPORT INFORMATION
  Report Type: 
  Country: None (occurrence: None)
  Receive Date: 20050709
  Receipt Date: 20050628
  Transmission Date: 20060218
  Serious: Yes (Other)
  Sender: FDA-Public Use
  Company Number: PHBS2005ES09325

PATIENT
  Age: 61 Year
  Sex: Male

DRUGS (2)
  1. ZOMETA [Suspect]
     Indication: MULTIPLE MYELOMA
     Dosage: UNK, QMO
     Route: 042
     Dates: start: 20010101
  2. INTERFERON [Concomitant]

REACTIONS (3)
  - ACTINOMYCOSIS [None]
  - PAIN [None]
  - TOOTH EXTRACTION [None]
